FAERS Safety Report 4628998-7 (Version None)
Quarter: 2005Q2

REPORT INFORMATION
  Report Type: 
  Country: None (occurrence: None)
  Receive Date: 20050405
  Receipt Date: 20050405
  Transmission Date: 20051028
  Serious: Yes (Disabling)
  Sender: FDA-Public Use
  Company Number: None

PATIENT
  Age: 32 Year
  Sex: Male
  Weight: 90.7194 kg

DRUGS (1)
  1. METHYLPREDNISOLONE [Suspect]
     Indication: SURGERY
     Dosage: 240 MG 3X IN A YEAR EPIDURAL
     Route: 008
     Dates: start: 20020401, end: 20030702

REACTIONS (3)
  - ARACHNOIDITIS [None]
  - MENINGITIS BACTERIAL [None]
  - PAIN [None]
